FAERS Safety Report 8329331-X (Version None)
Quarter: 2012Q2

REPORT INFORMATION
  Report Type: 
  Country: None (occurrence: None)
  Receive Date: 20120502
  Receipt Date: 20110328
  Transmission Date: 20120825
  Serious: No
  Sender: FDA-Public Use
  Company Number: US-ASTRAZENECA-2011SE17443

PATIENT
  Age: 50 Year
  Sex: Female
  Weight: 70.3 kg

DRUGS (6)
  1. VITAMIN D [Concomitant]
  2. VICODIN [Concomitant]
  3. FEMARA [Concomitant]
  4. FASLODEX [Suspect]
     Indication: BREAST CANCER RECURRENT
     Route: 030
     Dates: start: 20110101
  5. ASPIRIN [Concomitant]
  6. FASLODEX [Suspect]
     Route: 030

REACTIONS (6)
  - INJECTION SITE REACTION [None]
  - RASH [None]
  - NASOPHARYNGITIS [None]
  - NODULE [None]
  - BONE PAIN [None]
  - SINUSITIS [None]
